FAERS Safety Report 21593804 (Version 1)
Quarter: 2022Q4

REPORT INFORMATION
  Report Type: Spontaneous
  Country: US (occurrence: None)
  Receive Date: 20221114
  Receipt Date: 20221114
  Transmission Date: 20230113
  Serious: No
  Sender: FDA-Public Use
  Company Number: None

PATIENT
  Age: 43 Year
  Sex: Female
  Weight: 78.3 kg

DRUGS (20)
  1. MOLNUPIRAVIR [Suspect]
     Active Substance: MOLNUPIRAVIR
     Indication: COVID-19
     Dates: start: 20221109, end: 20221114
  2. NUCYNTA [Concomitant]
     Active Substance: TAPENTADOL HYDROCHLORIDE
  3. VITAMIN D NOS [Concomitant]
     Active Substance: VITAMIN D NOS
  4. Vit A [Concomitant]
  5. Indural [Concomitant]
  6. CLONAZEPAM [Concomitant]
     Active Substance: CLONAZEPAM
  7. VENLAFAXINE [Concomitant]
     Active Substance: VENLAFAXINE HYDROCHLORIDE
  8. ACYCLOVIR [Concomitant]
     Active Substance: ACYCLOVIR
  9. RISPERIDONE [Concomitant]
     Active Substance: RISPERIDONE
  10. FLEXERIL [Concomitant]
     Active Substance: CYCLOBENZAPRINE HYDROCHLORIDE
  11. MEMANTINE [Concomitant]
     Active Substance: MEMANTINE
  12. PRILOSEC [Concomitant]
     Active Substance: OMEPRAZOLE MAGNESIUM
  13. BENZONATATE [Concomitant]
     Active Substance: BENZONATATE
  14. LAMICTAL [Concomitant]
     Active Substance: LAMOTRIGINE
  15. SINGULAIR [Concomitant]
     Active Substance: MONTELUKAST SODIUM
  16. SYNTHROID [Concomitant]
     Active Substance: LEVOTHYROXINE SODIUM
  17. TEGRETOL [Concomitant]
     Active Substance: CARBAMAZEPINE
  18. REQUIP [Concomitant]
     Active Substance: ROPINIROLE HYDROCHLORIDE
  19. ANTIVERT [Concomitant]
     Active Substance: MECLIZINE HYDROCHLORIDE
  20. TOPAMAX [Concomitant]
     Active Substance: TOPIRAMATE

REACTIONS (1)
  - Epistaxis [None]

NARRATIVE: CASE EVENT DATE: 20221109
